FAERS Safety Report 17148085 (Version 3)
Quarter: 2020Q1

REPORT INFORMATION
  Report Type: Spontaneous
  Country: US (occurrence: US)
  Receive Date: 20191212
  Receipt Date: 20200122
  Transmission Date: 20200409
  Serious: No
  Sender: FDA-Public Use
  Company Number: NVSC2019US012069

PATIENT
  Age: 55 Year
  Sex: Female

DRUGS (2)
  1. COSENTYX [Suspect]
     Active Substance: SECUKINUMAB
     Indication: PSORIATIC ARTHROPATHY
  2. COSENTYX [Suspect]
     Active Substance: SECUKINUMAB
     Indication: PSORIATIC ARTHROPATHY
     Dosage: 150 MG (ONCE WEEKLY FOR 5 WEEKS, THEN ONCE EVERY 4 WEEKS) (BENEATH THE SKIN USUALLY VIA INJECTION)
     Route: 058
     Dates: start: 20191010

REACTIONS (7)
  - Middle ear inflammation [Unknown]
  - Enlarged uvula [Unknown]
  - Cough [Unknown]
  - Oropharyngeal pain [Unknown]
  - Dry throat [Unknown]
  - Pharyngeal swelling [Unknown]
  - Otitis media [Unknown]

NARRATIVE: CASE EVENT DATE: 20191012
